FAERS Safety Report 9420769 (Version 2)
Quarter: 2013Q3

REPORT INFORMATION
  Report Type: Spontaneous
  Country: CH (occurrence: None)
  Receive Date: 20130723
  Receipt Date: 20130822
  Transmission Date: 20140515
  Serious: Yes (Other)
  Sender: FDA-Public Use
  Company Number: 2013-306

PATIENT
  Age: 46 Year
  Sex: Female

DRUGS (1)
  1. CLOZAPINE [Suspect]
     Indication: PSYCHOTIC DISORDER
     Route: 048
     Dates: start: 201207

REACTIONS (15)
  - Toxicity to various agents [None]
  - Infection [None]
  - Cytokine storm [None]
  - Depressed level of consciousness [None]
  - Electrocardiogram QT prolonged [None]
  - Psychotic disorder [None]
  - Abdominal discomfort [None]
  - Dysphonia [None]
  - Delusion [None]
  - Diarrhoea [None]
  - Aspartate aminotransferase increased [None]
  - Bedridden [None]
  - Somnolence [None]
  - Depressed level of consciousness [None]
  - Sinus tachycardia [None]
